FAERS Safety Report 9801960 (Version 2)
Quarter: 2014Q1

REPORT INFORMATION
  Report Type: Spontaneous
  Country: US (occurrence: US)
  Receive Date: 20140107
  Receipt Date: 20140204
  Transmission Date: 20141002
  Serious: No
  Sender: FDA-Public Use
  Company Number: US-PFIZER INC-2014002474

PATIENT
  Age: 59 Year
  Sex: Male
  Weight: 95.2 kg

DRUGS (6)
  1. CHANTIX [Suspect]
     Indication: SMOKING CESSATION THERAPY
     Dosage: 0.5 MG, 1X/DAY
     Route: 048
     Dates: start: 20131130, end: 201312
  2. CHANTIX [Suspect]
     Dosage: 1 MG, 2X/DAY
     Route: 048
     Dates: start: 201312
  3. LIPITOR [Concomitant]
     Dosage: 80 MG, 1X/DAY
  4. AMBIEN CR [Concomitant]
     Dosage: 1 MG, 1X/DAY (BEDTIME)
  5. WELLBUTRIN SR [Concomitant]
     Dosage: 150 MG, 1X/DAY
  6. FLOMAX [Concomitant]
     Dosage: UNK

REACTIONS (1)
  - Blister [Not Recovered/Not Resolved]
